FAERS Safety Report 6540151-9 (Version None)
Quarter: 2010Q1

REPORT INFORMATION
  Report Type: 
  Country: None (occurrence: None)
  Receive Date: 20100112
  Receipt Date: 20091228
  Transmission Date: 20100710
  Serious: Yes (Other)
  Sender: FDA-Public Use
  Company Number: MPS1-1000269

PATIENT
  Age: 10 Month
  Sex: Male
  Weight: 11 kg

DRUGS (2)
  1. ALDURAZYME [Suspect]
     Indication: MUCOPOLYSACCHARIDOSIS I
     Dosage: 900 IU. 1X/W. INTRAVENOUS
     Route: 042
     Dates: start: 20090626, end: 20090921
  2. THYMOGLOBULIN [Suspect]
     Indication: BONE MARROW CONDITIONING REGIMEN
     Dosage: 55 MG
     Dates: start: 20090919, end: 20090922

REACTIONS (1)
  - HYPERTENSION [None]
